FAERS Safety Report 23331539 (Version 1)
Quarter: 2023Q4

REPORT INFORMATION
  Report Type: Spontaneous
  Country: CZ (occurrence: CZ)
  Receive Date: 20231222
  Receipt Date: 20231222
  Transmission Date: 20240110
  Serious: Yes (Other)
  Sender: FDA-Public Use
  Company Number: CZ-PHARMAAND-2023PHR00287

PATIENT
  Age: 24 Year
  Sex: Female

DRUGS (2)
  1. PEGINTERFERON ALFA-2A [Suspect]
     Active Substance: PEGINTERFERON ALFA-2A
     Indication: Polycythaemia vera
     Dates: start: 2021, end: 202206
  2. ANAGRELIDE [Concomitant]
     Active Substance: ANAGRELIDE
     Indication: Full blood count abnormal

REACTIONS (2)
  - Musculoskeletal toxicity [Unknown]
  - Off label use [Recovered/Resolved]
